FAERS Safety Report 19809712 (Version 1)
Quarter: 2021Q3

REPORT INFORMATION
  Report Type: Spontaneous
  Country: US (occurrence: US)
  Receive Date: 20210908
  Receipt Date: 20210908
  Transmission Date: 20211014
  Serious: No
  Sender: FDA-Public Use
  Company Number: US-ROCHE-2832540

PATIENT
  Sex: Female
  Weight: 61.29 kg

DRUGS (1)
  1. ALECENSA [Suspect]
     Active Substance: ALECTINIB HYDROCHLORIDE
     Indication: LUNG NEOPLASM MALIGNANT
     Dosage: SIX PER DAY
     Route: 048
     Dates: start: 202101

REACTIONS (2)
  - Chromaturia [Unknown]
  - Photosensitivity reaction [Unknown]
